FAERS Safety Report 18197838 (Version 3)
Quarter: 2020Q4

REPORT INFORMATION
  Report Type: Spontaneous
  Country: JP (occurrence: JP)
  Receive Date: 20200826
  Receipt Date: 20201130
  Transmission Date: 20210113
  Serious: Yes (Other)
  Sender: FDA-Public Use
  Company Number: JP-PFIZER INC-2020323624

PATIENT
  Age: 65 Year
  Sex: Female
  Weight: 45 kg

DRUGS (8)
  1. XALKORI [Suspect]
     Active Substance: CRIZOTINIB
     Dosage: 200 MG, 1X/DAY
     Route: 048
     Dates: start: 20171227, end: 20180111
  2. NIPRADILOL [Concomitant]
     Active Substance: NIPRADILOL
     Indication: GLAUCOMA
     Dosage: 1 DF, 2X/DAY
     Route: 047
  3. XALKORI [Suspect]
     Active Substance: CRIZOTINIB
     Dosage: 250 MG, ALTERNATE DAY
     Route: 048
     Dates: start: 20180112, end: 20180329
  4. XALKORI [Suspect]
     Active Substance: CRIZOTINIB
     Dosage: 250 MG, 1X/DAY
     Route: 048
     Dates: start: 20171201, end: 20171214
  5. XALKORI [Suspect]
     Active Substance: CRIZOTINIB
     Dosage: 250 MG, ALTERNATE DAY
     Route: 048
     Dates: start: 20171215, end: 20171226
  6. XALKORI [Suspect]
     Active Substance: CRIZOTINIB
     Dosage: 250 MG 5 DAYS ON AND 2 DAYS OFF
     Route: 048
     Dates: start: 20180330
  7. GRANISETRON [Concomitant]
     Active Substance: GRANISETRON
     Dosage: UNK
  8. XALKORI [Suspect]
     Active Substance: CRIZOTINIB
     Indication: LUNG NEOPLASM MALIGNANT
     Dosage: 250 MG, 2X/DAY
     Route: 048
     Dates: start: 20171019, end: 20171110

REACTIONS (8)
  - Neoplasm progression [Unknown]
  - Decreased appetite [Recovered/Resolved]
  - Aspartate aminotransferase increased [Recovered/Resolved]
  - Alanine aminotransferase increased [Recovered/Resolved]
  - Vomiting [Recovered/Resolved]
  - Hypophagia [Unknown]
  - Abdominal pain upper [Recovered/Resolved]
  - Nausea [Recovered/Resolved]

NARRATIVE: CASE EVENT DATE: 20171013
